FAERS Safety Report 5415376-6 (Version None)
Quarter: 2007Q3

REPORT INFORMATION
  Report Type: 
  Country: None (occurrence: None)
  Receive Date: 20070815
  Receipt Date: 20070809
  Transmission Date: 20080115
  Serious: Yes (Hospitalization)
  Sender: FDA-Public Use
  Company Number: AU-GENENTECH-245996

PATIENT
  Age: 60 Year
  Sex: Male

DRUGS (6)
  1. RITUXAN [Suspect]
     Indication: LYMPHOMA
  2. CYCLOPHOSPHAMIDE [Concomitant]
     Indication: LYMPHOMA
  3. ADRIAMYCIN PFS [Concomitant]
     Indication: LYMPHOMA
  4. ONCOVIN [Concomitant]
     Indication: LYMPHOMA
  5. PREDNISONE TAB [Concomitant]
     Indication: LYMPHOMA
  6. NEUPOGEN [Concomitant]
     Indication: DRUG USE FOR UNKNOWN INDICATION

REACTIONS (1)
  - PNEUMOCYSTIS JIROVECI PNEUMONIA [None]
